FAERS Safety Report 16006290 (Version 1)
Quarter: 2019Q1

REPORT INFORMATION
  Report Type: Spontaneous
  Country: FR (occurrence: FR)
  Receive Date: 20190226
  Receipt Date: 20190226
  Transmission Date: 20190418
  Serious: Yes (Other)
  Sender: FDA-Public Use
  Company Number: FR-MYLANLABS-2019M1016026

PATIENT
  Age: 70 Year
  Sex: Female

DRUGS (1)
  1. TOBRAMYCIN MYLAN [Suspect]
     Active Substance: TOBRAMYCIN
     Indication: LUNG INFECTION
     Dosage: UNK
     Route: 065

REACTIONS (1)
  - Haemorrhage [Unknown]
